FAERS Safety Report 11507214 (Version 1)
Quarter: 2015Q3

REPORT INFORMATION
  Report Type: Spontaneous
  Country: US (occurrence: US)
  Receive Date: 20150915
  Receipt Date: 20150915
  Transmission Date: 20151125
  Serious: No
  Sender: FDA-Public Use
  Company Number: US-BAYER-2015-423333

PATIENT
  Age: 52 Year
  Sex: Female
  Weight: 48.73 kg

DRUGS (1)
  1. OXYTROL FOR WOMEN [Suspect]
     Active Substance: OXYBUTYNIN
     Indication: HYPERTONIC BLADDER
     Dosage: 1 DF, EVERY 4 DAYS
     Route: 061
     Dates: start: 201508, end: 201509

REACTIONS (1)
  - Drug ineffective [None]
